FAERS Safety Report 8083091-9 (Version None)
Quarter: 2012Q1

REPORT INFORMATION
  Report Type: 
  Country: None (occurrence: None)
  Receive Date: 20120127
  Receipt Date: 20110302
  Transmission Date: 20120608
  Serious: No
  Sender: FDA-Public Use
  Company Number: US-ABBOTT-11P-163-0708864-00

PATIENT
  Sex: Female
  Weight: 136.2 kg

DRUGS (1)
  1. HUMIRA [Suspect]
     Indication: PSORIASIS
     Dates: start: 20101202, end: 20110221

REACTIONS (11)
  - FATIGUE [None]
  - INJECTION SITE SWELLING [None]
  - PAIN IN EXTREMITY [None]
  - NAUSEA [None]
  - VITREOUS FLOATERS [None]
  - HYPOAESTHESIA [None]
  - PARAESTHESIA [None]
  - MUSCULOSKELETAL PAIN [None]
  - WEIGHT DECREASED [None]
  - VISION BLURRED [None]
  - ARTHRITIS [None]
